FAERS Safety Report 11167289 (Version 1)
Quarter: 2015Q2

REPORT INFORMATION
  Report Type: Spontaneous
  Country: US (occurrence: None)
  Receive Date: 20150515
  Receipt Date: 20150515
  Transmission Date: 20150821
  Serious: Yes (Other)
  Sender: FDA-Public Use
  Company Number: 2014005785

PATIENT
  Age: 21 Year
  Sex: Female
  Weight: 104 kg

DRUGS (3)
  1. METHOTREXATE [Concomitant]
     Active Substance: METHOTREXATE
  2. CIMZIA [Suspect]
     Active Substance: CERTOLIZUMAB PEGOL
     Indication: RHEUMATOID ARTHRITIS
     Route: 058
     Dates: start: 20140531, end: 2014
  3. CIMZIA [Suspect]
     Active Substance: CERTOLIZUMAB PEGOL
     Indication: PSORIATIC ARTHROPATHY
     Route: 058
     Dates: start: 20140531, end: 2014

REACTIONS (13)
  - Sinusitis [None]
  - Nasopharyngitis [None]
  - Malaise [None]
  - Nausea [None]
  - Muscular weakness [None]
  - Bronchitis [None]
  - Pyrexia [None]
  - Vomiting [None]
  - Dizziness [None]
  - Diarrhoea [None]
  - Infection [None]
  - Migraine [None]
  - Visual impairment [None]

NARRATIVE: CASE EVENT DATE: 2014
